FAERS Safety Report 4553838-4 (Version None)
Quarter: 2005Q1

REPORT INFORMATION
  Report Type: 
  Country: None (occurrence: None)
  Receive Date: 20050111
  Receipt Date: 20050111
  Transmission Date: 20050727
  Serious: No
  Sender: FDA-Public Use
  Company Number: None

PATIENT
  Age: 53 Year
  Sex: Female

DRUGS (2)
  1. IRON DEXTRAN [Suspect]
     Dosage: INTRAVENOUS
     Route: 042
     Dates: start: 20041216, end: 20041216
  2. ELECTROLYTES/MINERALS [Suspect]
     Dosage: 25 MG
     Dates: start: 20041216, end: 20041216

REACTIONS (3)
  - BACK PAIN [None]
  - CHEST PAIN [None]
  - MUSCLE SPASMS [None]
